FAERS Safety Report 7216556-X (Version None)
Quarter: 2011Q1

REPORT INFORMATION
  Report Type: 
  Country: None (occurrence: None)
  Receive Date: 20110110
  Receipt Date: 20101229
  Transmission Date: 20110831
  Serious: Yes (Other)
  Sender: FDA-Public Use
  Company Number: US-RB-018240-11

PATIENT
  Age: 58 Year
  Sex: Male

DRUGS (1)
  1. MUCINEX D [Suspect]
     Dosage: PATIENT STARTED DOSING ON 28-DEC-2010 AND TOOK TWO TABLETS.
     Route: 048

REACTIONS (1)
  - ANURIA [None]
